FAERS Safety Report 9122798 (Version 2)
Quarter: 2013Q1

REPORT INFORMATION
  Report Type: Spontaneous
  Country: US (occurrence: None)
  Receive Date: 20130130
  Receipt Date: 20130204
  Transmission Date: 20140127
  Serious: Yes (Death, Other)
  Sender: FDA-Public Use
  Company Number: US-JNJFOC-20130112863

PATIENT
  Sex: 0

DRUGS (4)
  1. DECITABINE [Suspect]
     Indication: MYELOID LEUKAEMIA
     Route: 042
  2. DAUNORUBICIN [Suspect]
     Indication: MYELOID LEUKAEMIA
  3. CYTARABINE [Suspect]
     Indication: MYELOID LEUKAEMIA
  4. ETOPOSIDE [Suspect]
     Indication: MYELOID LEUKAEMIA

REACTIONS (3)
  - Pseudomonal sepsis [None]
  - Gastrointestinal necrosis [None]
  - Multi-organ failure [None]
